FAERS Safety Report 8763131 (Version 3)
Quarter: 2015Q4

REPORT INFORMATION
  Report Type: Spontaneous
  Country: US (occurrence: US)
  Receive Date: 20120831
  Receipt Date: 20151106
  Transmission Date: 20160305
  Serious: Yes (Hospitalization)
  Sender: FDA-Public Use
  Company Number: US-BAYER-2012-089254

PATIENT
  Age: 22 Year
  Sex: Female

DRUGS (5)
  1. GIANVI [Suspect]
     Active Substance: DROSPIRENONE\ETHINYL ESTRADIOL
     Indication: CONTRACEPTION
  2. SIMVASTATIN. [Concomitant]
     Active Substance: SIMVASTATIN
  3. IODINE [Concomitant]
     Active Substance: IODINE
  4. YAZ [Suspect]
     Active Substance: DROSPIRENONE\ETHINYL ESTRADIOL
     Indication: MENSTRUAL CYCLE MANAGEMENT
  5. BROMELAIN [Concomitant]
     Active Substance: BROMELAINS

REACTIONS (2)
  - Maternal exposure before pregnancy [None]
  - Cerebrovascular accident [None]

NARRATIVE: CASE EVENT DATE: 20110520
